FAERS Safety Report 24200669 (Version 1)
Quarter: 2024Q3

REPORT INFORMATION
  Report Type: Spontaneous
  Country: US (occurrence: US)
  Receive Date: 20240812
  Receipt Date: 20240812
  Transmission Date: 20241017
  Serious: No
  Sender: ANI
  Company Number: US-ANIPHARMA-2024-US-040234

PATIENT
  Age: 29 Year
  Sex: Male

DRUGS (12)
  1. CORTICOTROPIN [Suspect]
     Active Substance: CORTICOTROPIN
     Indication: Polymyositis
     Dosage: 1 ML TWO TIMES PER WEEK
     Route: 058
  2. EZETIMIBE [Concomitant]
     Active Substance: EZETIMIBE
  3. PREDNISONE [Concomitant]
     Active Substance: PREDNISONE
  4. IBUPROFEN [Concomitant]
     Active Substance: IBUPROFEN
  5. PRALUENT [Concomitant]
     Active Substance: ALIROCUMAB
  6. GABAPENTIN [Concomitant]
     Active Substance: GABAPENTIN
  7. AZATHIOPRINE [Concomitant]
     Active Substance: AZATHIOPRINE
  8. LEVOTHYROXINE SODIUM [Concomitant]
     Active Substance: LEVOTHYROXINE SODIUM
  9. METOPROLOL TARTRATE [Concomitant]
     Active Substance: METOPROLOL TARTRATE
  10. IRBESARTAN [Concomitant]
     Active Substance: IRBESARTAN
  11. VASCEPA [Concomitant]
     Active Substance: ICOSAPENT ETHYL
  12. OMEPRAZOLE [Concomitant]
     Active Substance: OMEPRAZOLE

REACTIONS (2)
  - Product dose omission issue [Unknown]
  - Headache [Unknown]

NARRATIVE: CASE EVENT DATE: 20240718
